FAERS Safety Report 8438767-8 (Version None)
Quarter: 2012Q2

REPORT INFORMATION
  Report Type: 
  Country: None (occurrence: None)
  Receive Date: 20120608
  Receipt Date: 20090619
  Transmission Date: 20120825
  Serious: Yes (Hospitalization)
  Sender: FDA-Public Use
  Company Number: 2009AP002492

PATIENT
  Age: 24 Year
  Sex: Female

DRUGS (2)
  1. RISPERIDONE [Suspect]
     Indication: OFF LABEL USE
     Dosage: 9 TAB, PO
     Route: 048
  2. RISPERIDONE [Suspect]
     Indication: HEADACHE
     Dosage: 9 TAB, PO
     Route: 048

REACTIONS (9)
  - LABORATORY TEST ABNORMAL [None]
  - EYE MOVEMENT DISORDER [None]
  - DYSTONIA [None]
  - EXTRAPYRAMIDAL DISORDER [None]
  - OFF LABEL USE [None]
  - PROTRUSION TONGUE [None]
  - OVERDOSE [None]
  - APHASIA [None]
  - TORTICOLLIS [None]
